FAERS Safety Report 8769400 (Version 1)
Quarter: 2012Q4

REPORT INFORMATION
  Report Type: 
  Country: CA (occurrence: CA)
  Receive Date: 20120905
  Receipt Date: 20120905
  Transmission Date: 20130627
  Serious: Yes (Death)
  Sender: FDA-Public Use
  Company Number: CA-BAYER-2012-092085

PATIENT
  Age: 53 Year
  Sex: Female

DRUGS (1)
  1. BETASERON [Suspect]
     Indication: MULTIPLE SCLEROSIS
     Dosage: .25 mg, UNK
     Dates: start: 20020401, end: 20120724

REACTIONS (1)
  - Death [Fatal]
